FAERS Safety Report 24971348 (Version 2)
Quarter: 2025Q4

REPORT INFORMATION
  Report Type: Report from Study
  Country: AR (occurrence: None)
  Receive Date: 20250214
  Receipt Date: 20251015
  Transmission Date: 20260117
  Serious: Yes (Death, Hospitalization, Other)
  Sender: UCB
  Company Number: AR-UCBSA-2025007611

PATIENT
  Age: 79 Year

DRUGS (2)
  1. ROTIGOTINE [Suspect]
     Active Substance: ROTIGOTINE
     Indication: Parkinson^s disease
     Dosage: 8 MILLIGRAM, ONCE DAILY (QD)
  2. ROTIGOTINE [Suspect]
     Active Substance: ROTIGOTINE
     Dosage: 4 MILLIGRAM

REACTIONS (4)
  - Respiratory arrest [Fatal]
  - Pneumonia [Not Recovered/Not Resolved]
  - Cardiac failure [Not Recovered/Not Resolved]
  - Endotracheal intubation [Not Recovered/Not Resolved]
